FAERS Safety Report 6867814-X (Version None)
Quarter: 2010Q3

REPORT INFORMATION
  Report Type: 
  Country: None (occurrence: None)
  Receive Date: 20100722
  Receipt Date: 20100722
  Transmission Date: 20110219
  Serious: Yes (Other)
  Sender: FDA-Public Use
  Company Number: None

PATIENT
  Age: 57 Year
  Sex: Female

DRUGS (1)
  1. HUMIRA [Suspect]
     Indication: RHEUMATOID ARTHRITIS
     Dosage: ABBOTT
     Route: 058
     Dates: start: 20090601, end: 20100615

REACTIONS (3)
  - CHILLS [None]
  - RASH ERYTHEMATOUS [None]
  - RASH PRURITIC [None]
